FAERS Safety Report 5847615-1 (Version None)
Quarter: 2008Q3

REPORT INFORMATION
  Report Type: 
  Country: None (occurrence: None)
  Receive Date: 20080815
  Receipt Date: 20080815
  Transmission Date: 20090109
  Serious: Yes (Other)
  Sender: FDA-Public Use
  Company Number: None

PATIENT
  Sex: Male
  Weight: 117.4816 kg

DRUGS (1)
  1. AMLODIPINE BESYLATE [Suspect]
     Indication: HYPERTENSION
     Dosage: 10 MG 1 1/2 DAILY ORAL
     Route: 048

REACTIONS (4)
  - FATIGUE [None]
  - HEADACHE [None]
  - HYPERTENSION [None]
  - TREMOR [None]
